APPROVED DRUG PRODUCT: FERABRIGHT
Active Ingredient: FERUMOXYTOL
Strength: EQ 300MG IRON/10ML (EQ 30MG IRON/ML)
Dosage Form/Route: SOLUTION;INTRAVENOUS
Application: N219868 | Product #001
Applicant: COVIS PHARMA GMBH
Approved: Oct 16, 2025 | RLD: Yes | RS: Yes | Type: RX

EXCLUSIVITY:
Code: NP | Date: Oct 16, 2028